FAERS Safety Report 4488894-5 (Version None)
Quarter: 2004Q3

REPORT INFORMATION
  Report Type: 
  Country: None (occurrence: None)
  Receive Date: 20040921
  Receipt Date: 20040724
  Transmission Date: 20050211
  Serious: Yes (Hospitalization)
  Sender: FDA-Public Use
  Company Number: 163-20785-03040560

PATIENT
  Age: 60 Year
  Sex: Male

DRUGS (4)
  1. THALOMID [Suspect]
     Dosage: 200 MG, QD, ORAL
     Route: 048
  2. DEXAMETHASONE [Suspect]
     Dosage: INTRAVENOUS
     Route: 042
  3. BIPHOSPHONATES (BIPHOSPHONATES) [Concomitant]
  4. ZOLEDRONIC ACID ZOLEDRONIC ACID) [Concomitant]

REACTIONS (1)
  - RENAL FAILURE [None]
